FAERS Safety Report 7637486-5 (Version None)
Quarter: 2011Q3

REPORT INFORMATION
  Report Type: 
  Country: None (occurrence: None)
  Receive Date: 20110726
  Receipt Date: 20110715
  Transmission Date: 20111222
  Serious: Yes (Hospitalization, Other)
  Sender: FDA-Public Use
  Company Number: PHHY2011US07569

PATIENT
  Sex: Female
  Weight: 94 kg

DRUGS (23)
  1. QUINAPRIL HCL [Concomitant]
  2. GABAPENTIN [Concomitant]
  3. LIPOFLAVONOID [Concomitant]
  4. EXJADE [Suspect]
     Dosage: 2000 MG, UNK
  5. ANTIBIOTICS [Concomitant]
     Dosage: UNK
  6. NEXIUM [Concomitant]
  7. EXJADE [Suspect]
     Indication: MYELODYSPLASTIC SYNDROME
     Dosage: 2500 MG DAILY
     Route: 048
     Dates: start: 20090902
  8. AMBIEN [Concomitant]
  9. COREG [Concomitant]
  10. LASIX [Concomitant]
  11. VICODIN [Concomitant]
  12. POTASSIUM [Concomitant]
  13. NITROGLYCERIN [Concomitant]
  14. SPIRONOLACTONE [Concomitant]
  15. LEVATOL [Concomitant]
  16. VITAMIN D [Concomitant]
  17. MECLIZINE [Concomitant]
  18. FLEXPEN [Concomitant]
  19. CENTRUM SILVER [Concomitant]
  20. VICOPROFEN [Concomitant]
  21. ASPIRIN [Concomitant]
  22. LEVEMIR [Concomitant]
  23. FUROSEMIDE [Concomitant]

REACTIONS (10)
  - ALANINE AMINOTRANSFERASE INCREASED [None]
  - KIDNEY INFECTION [None]
  - URINARY TRACT INFECTION [None]
  - PHARYNGITIS [None]
  - FALL [None]
  - BLOOD BILIRUBIN INCREASED [None]
  - ABDOMINAL DISCOMFORT [None]
  - ASPARTATE AMINOTRANSFERASE INCREASED [None]
  - PELVIC FRACTURE [None]
  - LIVER FUNCTION TEST ABNORMAL [None]
